FAERS Safety Report 5370653-2 (Version None)
Quarter: 2007Q2

REPORT INFORMATION
  Report Type: 
  Country: None (occurrence: None)
  Receive Date: 20070618
  Receipt Date: 20060918
  Transmission Date: 20071010
  Serious: Yes (Other)
  Sender: FDA-Public Use
  Company Number: PHEH2006US09682

PATIENT
  Age: 46 Year
  Sex: Male

DRUGS (1)
  1. GLEEVEC [Suspect]
     Indication: DESMOID TUMOUR
     Dosage: 400 MG, QD, ORAL
     Route: 048
     Dates: start: 20050520, end: 20060731

REACTIONS (6)
  - ANAEMIA [None]
  - ASTHENIA [None]
  - DIARRHOEA [None]
  - NEOPLASM PROGRESSION [None]
  - PERIORBITAL OEDEMA [None]
  - WEIGHT INCREASED [None]
